FAERS Safety Report 4780937-4 (Version None)
Quarter: 2005Q3

REPORT INFORMATION
  Report Type: 
  Country: None (occurrence: None)
  Receive Date: 20050927
  Receipt Date: 20050927
  Transmission Date: 20060218
  Serious: Yes (Other)
  Sender: FDA-Public Use
  Company Number: None

PATIENT
  Age: 30 Year
  Sex: Male
  Weight: 108.8633 kg

DRUGS (1)
  1. KEPPRA [Suspect]
     Indication: MIGRAINE
     Dosage: 1/2 A TABLET 2XS DAY 7 DAYS PO
     Route: 048
     Dates: start: 20050922, end: 20050922

REACTIONS (6)
  - DYSPNOEA [None]
  - HEADACHE [None]
  - MALAISE [None]
  - PAIN [None]
  - PHARYNGOLARYNGEAL PAIN [None]
  - PYREXIA [None]
